FAERS Safety Report 6539116-2 (Version None)
Quarter: 2010Q1

REPORT INFORMATION
  Report Type: 
  Country: None (occurrence: None)
  Receive Date: 20100115
  Receipt Date: 20100112
  Transmission Date: 20100710
  Serious: Yes (Death, Other)
  Sender: FDA-Public Use
  Company Number: PHEH2009US18389

PATIENT
  Sex: Male

DRUGS (2)
  1. EXJADE [Suspect]
     Dosage: 500 MG, TID
     Route: 048
     Dates: start: 20091111, end: 20091209
  2. CYCLOSPORINE [Concomitant]

REACTIONS (6)
  - BRONCHOPNEUMONIA [None]
  - IMMUNOSUPPRESSION [None]
  - PYREXIA [None]
  - RENAL FAILURE [None]
  - RESPIRATORY FAILURE [None]
  - VIRAL INFECTION [None]
